FAERS Safety Report 6593091-3 (Version None)
Quarter: 2010Q1

REPORT INFORMATION
  Report Type: 
  Country: None (occurrence: None)
  Receive Date: 20100212
  Receipt Date: 20100201
  Transmission Date: 20100710
  Serious: Yes (Hospitalization)
  Sender: FDA-Public Use
  Company Number: POMP-1000846

PATIENT
  Age: 20 Month
  Sex: Female

DRUGS (1)
  1. MYOZYME [Suspect]
     Indication: GLYCOGEN STORAGE DISEASE TYPE II

REACTIONS (5)
  - CARDIAC ARREST [None]
  - CARDIOMYOPATHY [None]
  - CONVULSION [None]
  - HYPOTONIA [None]
  - MACROGLOSSIA [None]
